FAERS Safety Report 24686107 (Version 1)
Quarter: 2024Q4

REPORT INFORMATION
  Report Type: Spontaneous
  Country: US (occurrence: None)
  Receive Date: 20241129
  Receipt Date: 20241129
  Transmission Date: 20250115
  Serious: Yes (Hospitalization)
  Sender: Public
  Company Number: None

PATIENT
  Sex: Female

DRUGS (3)
  1. TACROLIMUS [Suspect]
     Active Substance: TACROLIMUS
     Indication: Renal transplant
     Dosage: OTHER FREQUENCY : 3 CAPS IN MORNING AND 2 CAPS NIGHT ;?TAKE 3 CAPSULES BY MOUTH IN THE MORNING AND 2
     Route: 048
     Dates: start: 201908
  2. TACROLIMUS (GLENMARK) [Concomitant]
  3. MYCOPHENOLATE MOFETIL [Concomitant]

REACTIONS (1)
  - Escherichia infection [None]
